FAERS Safety Report 7274429-0 (Version None)
Quarter: 2011Q1

REPORT INFORMATION
  Report Type: 
  Country: None (occurrence: None)
  Receive Date: 20110204
  Receipt Date: 20110125
  Transmission Date: 20110831
  Serious: Yes (Other)
  Sender: FDA-Public Use
  Company Number: CA-JNJFOC-20110107451

PATIENT
  Sex: Female
  Weight: 74.4 kg

DRUGS (17)
  1. IMODIUM [Concomitant]
     Route: 065
  2. REMICADE [Suspect]
     Indication: CROHN'S DISEASE
     Route: 042
  3. SYNTHROID [Concomitant]
     Route: 065
  4. AMITRIPTYLINE HCL [Concomitant]
     Route: 065
  5. DEMEROL [Concomitant]
     Route: 065
  6. MEDROXYPROGESTERONE [Concomitant]
     Route: 065
  7. LECITHIN [Concomitant]
     Route: 065
  8. QUESTRAN [Concomitant]
     Route: 065
  9. METOCLOPRAMIDE [Concomitant]
     Route: 065
  10. ESTRACE [Concomitant]
     Route: 065
  11. ASPIRIN [Concomitant]
     Route: 065
  12. VITAMIN B-12 [Concomitant]
     Route: 050
  13. IMURAN [Concomitant]
     Route: 065
  14. GRAVOL TAB [Concomitant]
     Route: 065
  15. LUTEIN [Concomitant]
     Route: 065
  16. REMICADE [Suspect]
     Route: 042
  17. HRT [Concomitant]
     Route: 065

REACTIONS (1)
  - RHEUMATOID ARTHRITIS [None]
